FAERS Safety Report 5748600-0 (Version None)
Quarter: 2008Q2

REPORT INFORMATION
  Report Type: 
  Country: None (occurrence: None)
  Receive Date: 20080523
  Receipt Date: 20080515
  Transmission Date: 20081010
  Serious: Yes (Life-Threatening, Hospitalization)
  Sender: FDA-Public Use
  Company Number: GB-PFIZER INC-2008042725

PATIENT
  Age: 24 Year
  Sex: Female

DRUGS (7)
  1. SERTRALINE [Suspect]
  2. AMOXICILLIN [Suspect]
  3. HYOSCINE [Suspect]
  4. ANTIBIOTICS [Suspect]
  5. CLOZARIL [Suspect]
     Indication: SCHIZOPHRENIA
     Route: 048
     Dates: start: 20030623, end: 20060504
  6. MOCLOBEMIDE [Concomitant]
     Indication: DEPRESSION
     Route: 048
  7. SULPIRIDE [Concomitant]
     Indication: SCHIZOPHRENIA
     Dosage: DAILY DOSE:400MG
     Route: 048

REACTIONS (9)
  - ALANINE AMINOTRANSFERASE INCREASED [None]
  - CONDITION AGGRAVATED [None]
  - HAEMOGLOBIN DECREASED [None]
  - LIVER FUNCTION TEST ABNORMAL [None]
  - LOSS OF CONSCIOUSNESS [None]
  - MULTIPLE DRUG OVERDOSE [None]
  - OVERDOSE [None]
  - VOMITING [None]
  - WEIGHT DECREASED [None]
